FAERS Safety Report 8018317-0 (Version None)
Quarter: 2012Q1

REPORT INFORMATION
  Report Type: 
  Country: None (occurrence: None)
  Receive Date: 20120103
  Receipt Date: 20111229
  Transmission Date: 20120608
  Serious: Yes (Other)
  Sender: FDA-Public Use
  Company Number: FR-B.I. PHARMACEUTICALS,INC./RIDGEFIELD-2011-FF-01239FF

PATIENT
  Sex: Male

DRUGS (4)
  1. KETOPROFEN [Concomitant]
     Indication: PAIN
  2. PRADAXA [Suspect]
     Indication: THROMBOSIS PROPHYLAXIS
     Dosage: 220 MG
     Route: 048
     Dates: start: 20111018, end: 20111026
  3. PRADAXA [Suspect]
     Indication: HIP ARTHROPLASTY
  4. ACETAMINOPHEN [Concomitant]
     Indication: PAIN

REACTIONS (1)
  - POST PROCEDURAL DISCHARGE [None]
